FAERS Safety Report 7029175-5 (Version None)
Quarter: 2010Q3

REPORT INFORMATION
  Report Type: 
  Country: None (occurrence: None)
  Receive Date: 20100930
  Receipt Date: 20100914
  Transmission Date: 20110219
  Serious: Yes (Hospitalization, Other)
  Sender: FDA-Public Use
  Company Number: 1000016258

PATIENT
  Age: 47 Year
  Sex: Female

DRUGS (15)
  1. THYROID TAB [Suspect]
     Indication: AUTOIMMUNE THYROIDITIS
     Dosage: SEE IMAGE
     Route: 048
     Dates: start: 20040727, end: 20040822
  2. THYROID TAB [Suspect]
     Indication: HYPOTHYROIDISM
     Dosage: SEE IMAGE
     Route: 048
     Dates: start: 20040727, end: 20040822
  3. THYROID TAB [Suspect]
     Indication: AUTOIMMUNE THYROIDITIS
     Dosage: SEE IMAGE
     Route: 048
     Dates: start: 20040823, end: 20041117
  4. THYROID TAB [Suspect]
     Indication: HYPOTHYROIDISM
     Dosage: SEE IMAGE
     Route: 048
     Dates: start: 20040823, end: 20041117
  5. THYROID TAB [Suspect]
     Indication: AUTOIMMUNE THYROIDITIS
     Dosage: SEE IMAGE
     Route: 048
     Dates: start: 20041118, end: 20050207
  6. THYROID TAB [Suspect]
     Indication: HYPOTHYROIDISM
     Dosage: SEE IMAGE
     Route: 048
     Dates: start: 20041118, end: 20050207
  7. THYROID TAB [Suspect]
     Indication: AUTOIMMUNE THYROIDITIS
     Dosage: SEE IMAGE
     Route: 048
     Dates: start: 20050208, end: 20090624
  8. THYROID TAB [Suspect]
     Indication: HYPOTHYROIDISM
     Dosage: SEE IMAGE
     Route: 048
     Dates: start: 20050208, end: 20090624
  9. THYROID TAB [Suspect]
     Indication: AUTOIMMUNE THYROIDITIS
     Dosage: 90 MG (90 MG,1 IN D), ORAL
     Route: 048
     Dates: start: 20090625, end: 20090724
  10. THYROID TAB [Suspect]
     Indication: HYPOTHYROIDISM
     Dosage: 90 MG (90 MG,1 IN D), ORAL
     Route: 048
     Dates: start: 20090625, end: 20090724
  11. XANAX [Concomitant]
  12. CLONAZEPAM (CLONAZEPAM) (TABLETS) (CLONAZEPAM) [Concomitant]
  13. VALIUM [Concomitant]
  14. CELEXA (CITALOPRAM HYDROBROMIDE) (TABLETS) (CITALOPRAM HYDROBROMIDE) [Concomitant]
  15. TRAMADOL (TRAMADOL) (50 MILLIGRAM, TABLETS) (TRAMADOL) [Concomitant]

REACTIONS (19)
  - ALOPECIA [None]
  - ANXIETY [None]
  - BLOOD CHOLESTEROL INCREASED [None]
  - BLOOD THYROID STIMULATING HORMONE INCREASED [None]
  - BLOOD TRIGLYCERIDES INCREASED [None]
  - DANDRUFF [None]
  - DIABETES MELLITUS [None]
  - DRY SKIN [None]
  - DYSPHONIA [None]
  - HEADACHE [None]
  - HYPERTENSION [None]
  - LARYNGEAL OEDEMA [None]
  - MOOD SWINGS [None]
  - NERVOUSNESS [None]
  - ONYCHOCLASIS [None]
  - PALPITATIONS [None]
  - SKIN EXFOLIATION [None]
  - VOCAL CORD DISORDER [None]
  - WEIGHT INCREASED [None]
